FAERS Safety Report 5696032-6 (Version None)
Quarter: 2008Q2

REPORT INFORMATION
  Report Type: 
  Country: None (occurrence: None)
  Receive Date: 20080407
  Receipt Date: 20080401
  Transmission Date: 20081010
  Serious: Yes (Death, Hospitalization, Other)
  Sender: FDA-Public Use
  Company Number: A0719429A

PATIENT
  Age: 69 Year
  Sex: Male
  Weight: 82 kg

DRUGS (15)
  1. PAXIL [Suspect]
     Indication: DRUG USE FOR UNKNOWN INDICATION
  2. IRINOTECAN HYDROCHLORIDE [Suspect]
     Indication: GLIOBLASTOMA MULTIFORME
     Dosage: 125MGM2 CUMULATIVE DOSE
     Route: 042
     Dates: start: 20070817, end: 20080108
  3. BEVACIZUMAB [Suspect]
     Indication: GLIOBLASTOMA MULTIFORME
     Dosage: 10MGK CYCLIC
     Route: 042
     Dates: start: 20070817, end: 20080108
  4. ENOXAPARIN SODIUM [Suspect]
     Indication: DRUG USE FOR UNKNOWN INDICATION
  5. FLUDROCORTISONE ACETATE [Suspect]
     Indication: DRUG USE FOR UNKNOWN INDICATION
  6. METFORMIN HCL [Suspect]
     Indication: DRUG USE FOR UNKNOWN INDICATION
  7. OXYCONTIN [Suspect]
     Indication: DRUG USE FOR UNKNOWN INDICATION
  8. OXYCODONE HCL [Suspect]
     Indication: DRUG USE FOR UNKNOWN INDICATION
  9. PREDNISONE [Suspect]
     Indication: DRUG USE FOR UNKNOWN INDICATION
  10. PREVACID [Suspect]
     Indication: DRUG USE FOR UNKNOWN INDICATION
  11. SYNTHROID [Suspect]
     Indication: DRUG USE FOR UNKNOWN INDICATION
  12. TOPAMAX [Suspect]
     Indication: DRUG USE FOR UNKNOWN INDICATION
  13. WARFARIN SODIUM [Suspect]
     Indication: DRUG USE FOR UNKNOWN INDICATION
  14. KEPPRA [Suspect]
     Indication: DRUG USE FOR UNKNOWN INDICATION
  15. DECADRON [Concomitant]
     Indication: DRUG USE FOR UNKNOWN INDICATION

REACTIONS (20)
  - ASTHENIA [None]
  - BACK PAIN [None]
  - CEREBRAL HAEMORRHAGE [None]
  - CEREBRAL ISCHAEMIA [None]
  - CEREBROVASCULAR ACCIDENT [None]
  - COMMUNICATION DISORDER [None]
  - CONFUSIONAL STATE [None]
  - DEATH [None]
  - DYSARTHRIA [None]
  - DYSPHONIA [None]
  - ENCEPHALOPATHY [None]
  - GAIT DISTURBANCE [None]
  - HEADACHE [None]
  - MENTAL STATUS CHANGES [None]
  - MUSCULAR WEAKNESS [None]
  - PERIPHERAL MOTOR NEUROPATHY [None]
  - SOMNOLENCE [None]
  - SPEECH DISORDER [None]
  - THROMBOSIS [None]
  - WEIGHT DECREASED [None]
